FAERS Safety Report 20043857 (Version 1)
Quarter: 2021Q4

REPORT INFORMATION
  Report Type: Spontaneous
  Country: US (occurrence: US)
  Receive Date: 20211108
  Receipt Date: 20211108
  Transmission Date: 20220304
  Serious: Yes (Other)
  Sender: FDA-Public Use
  Company Number: US-MYLANLABS-2021M1080383

PATIENT
  Age: 14 Year
  Sex: Male

DRUGS (8)
  1. HALOPERIDOL [Suspect]
     Active Substance: HALOPERIDOL
     Indication: Acute psychosis
     Dosage: 2.5 MILLIGRAM, QD ON DAY 3 IN EMERGENCY DEPARTMENT
     Route: 030
  2. HALOPERIDOL [Suspect]
     Active Substance: HALOPERIDOL
     Dosage: 5 MILLIGRAM, QD ON DAY 5 AND DAY 6 IN EMERGENCY DEPARTMENT
     Route: 030
  3. RISPERIDONE [Concomitant]
     Active Substance: RISPERIDONE
     Indication: Acute psychosis
     Dosage: 0.5 MILLIGRAM, BID ON DAY 2 AND DAY 4 IN EMERGENCY DEPARTMENT
     Route: 048
  4. RISPERIDONE [Concomitant]
     Active Substance: RISPERIDONE
     Dosage: 0.5 MILLIGRAM, QD ON DAY 5 AND DAY 6 IN EMERGENCY DEPARTMENT
     Route: 048
  5. RISPERIDONE [Concomitant]
     Active Substance: RISPERIDONE
     Dosage: 1 MILLIGRAM, BID TREATMENT CONTINUED
     Route: 048
  6. DIPHENHYDRAMINE [Concomitant]
     Active Substance: DIPHENHYDRAMINE
     Indication: Acute psychosis
     Dosage: 50 MILLIGRAM, QD ON DAY 3, 5 AND 6 IN EMERGENCY DEPARTMENT
     Route: 030
  7. LORAZEPAM [Concomitant]
     Active Substance: LORAZEPAM
     Indication: Acute psychosis
     Dosage: 1 MILLIGRAM, QD ON DAY 1 AND 2 IN EMERGENCY DEPARTMENT
     Route: 030
  8. LORAZEPAM [Concomitant]
     Active Substance: LORAZEPAM
     Dosage: 2 MILLIGRAM, QD FROM DAY 3 TO DAY 6 IN EMERGENCY DEPARTMENT
     Route: 030

REACTIONS (2)
  - Angioedema [Recovered/Resolved]
  - Drooling [Recovered/Resolved]
